FAERS Safety Report 23063506 (Version 1)
Quarter: 2023Q4

REPORT INFORMATION
  Report Type: Spontaneous
  Country: CA (occurrence: CA)
  Receive Date: 20231013
  Receipt Date: 20231013
  Transmission Date: 20240110
  Serious: Yes (Other)
  Sender: FDA-Public Use
  Company Number: CA-SA-2017SA210776

PATIENT
  Age: 58 Year
  Sex: Female
  Weight: 52 kg

DRUGS (18)
  1. PANTOPRAZOLE SODIUM [Suspect]
     Active Substance: PANTOPRAZOLE SODIUM
     Indication: Product used for unknown indication
     Dosage: DOSE DESCRIPTION : 40 MG,QD
     Route: 048
  2. ROSUVASTATIN CALCIUM [Suspect]
     Active Substance: ROSUVASTATIN CALCIUM
     Indication: Product used for unknown indication
     Dosage: DOSE DESCRIPTION : 5 MG,QD
     Route: 065
  3. ACETAMINOPHEN [Suspect]
     Active Substance: ACETAMINOPHEN
     Indication: Product used for unknown indication
     Dosage: DOSE DESCRIPTION : 1 DF,QD
     Route: 065
  4. BACLOFEN [Suspect]
     Active Substance: BACLOFEN
     Indication: Product used for unknown indication
     Dosage: DOSE DESCRIPTION : 30 MG
     Route: 065
  5. LEFLUNOMIDE [Suspect]
     Active Substance: LEFLUNOMIDE
     Indication: Product used for unknown indication
     Dosage: DOSE DESCRIPTION : UNK UNK,UNK
     Route: 048
  6. DULOXETINE HYDROCHLORIDE [Suspect]
     Active Substance: DULOXETINE HYDROCHLORIDE
     Indication: Product used for unknown indication
     Dosage: DOSE DESCRIPTION : 30 MG,UNK
     Route: 065
  7. GLICLAZIDE [Suspect]
     Active Substance: GLICLAZIDE
     Indication: Product used for unknown indication
     Dosage: DOSE DESCRIPTION : 30 MG,UNK
     Route: 065
  8. METFORMIN HYDROCHLORIDE [Suspect]
     Active Substance: METFORMIN HYDROCHLORIDE
     Indication: Product used for unknown indication
     Dosage: DOSE DESCRIPTION : 1000 MG,BID
     Route: 065
  9. TELMISARTAN [Suspect]
     Active Substance: TELMISARTAN
     Indication: Product used for unknown indication
     Dosage: DOSE DESCRIPTION : 80 MG,QD
     Route: 065
  10. LEUCOVORIN [Suspect]
     Active Substance: LEUCOVORIN\LEUCOVORIN CALCIUM
     Indication: Product used for unknown indication
     Dosage: DOSE DESCRIPTION : 10 MG,QW
     Route: 065
  11. LEUCOVORIN CALCIUM [Suspect]
     Active Substance: LEUCOVORIN CALCIUM
     Indication: Product used for unknown indication
     Dosage: DOSE DESCRIPTION : 10 MG, QD
     Route: 065
  12. ACETAMINOPHEN [Suspect]
     Active Substance: ACETAMINOPHEN
     Indication: Product used for unknown indication
     Dosage: DOSE DESCRIPTION : 1 DF, QD
     Route: 065
  13. SITAGLIPTIN PHOSPHATE [Suspect]
     Active Substance: SITAGLIPTIN PHOSPHATE
     Indication: Product used for unknown indication
     Dosage: DOSE DESCRIPTION : 100 MG,UNK
     Route: 065
  14. PANTOPRAZOLE MAGNESIUM [Suspect]
     Active Substance: PANTOPRAZOLE MAGNESIUM
     Dosage: DOSE DESCRIPTION : 40 MG,QD
     Route: 065
  15. SULFASALAZINE [Concomitant]
     Active Substance: SULFASALAZINE
     Dosage: DOSE DESCRIPTION : 1 G,QD
     Route: 065
  16. METHOTREXATE [Concomitant]
     Active Substance: METHOTREXATE
     Route: 065
  17. PREDNISOLONE [Concomitant]
     Active Substance: PREDNISOLONE
     Dosage: DOSE DESCRIPTION : 5 MG,QD
     Route: 065
  18. DENOSUMAB [Concomitant]
     Active Substance: DENOSUMAB
     Dosage: DOSE DESCRIPTION : 60 MG,UNK
     Route: 058

REACTIONS (23)
  - Rheumatoid arthritis [Unknown]
  - Tendonitis [Unknown]
  - Rotator cuff syndrome [Unknown]
  - Bursitis [Unknown]
  - Muscle atrophy [Unknown]
  - Scoliosis [Unknown]
  - Osteoporosis [Unknown]
  - Hypokinesia [Unknown]
  - Hand deformity [Unknown]
  - Haemoglobin increased [Unknown]
  - Blood pressure systolic increased [Unknown]
  - Dizziness [Unknown]
  - Joint noise [Unknown]
  - Arthralgia [Unknown]
  - Myalgia [Unknown]
  - Nausea [Unknown]
  - Osteoarthritis [Unknown]
  - Pain [Unknown]
  - Pain in extremity [Unknown]
  - Joint swelling [Unknown]
  - Drug ineffective [Unknown]
  - Arthralgia [Unknown]
  - Musculoskeletal pain [Unknown]

NARRATIVE: CASE EVENT DATE: 20000101
